FAERS Safety Report 5745491-9 (Version None)
Quarter: 2008Q2

REPORT INFORMATION
  Report Type: 
  Country: None (occurrence: None)
  Receive Date: 20080521
  Receipt Date: 20080508
  Transmission Date: 20081010
  Serious: Yes (Life-Threatening, Hospitalization)
  Sender: FDA-Public Use
  Company Number: US-ELI_LILLY_AND_COMPANY-US200805001677

PATIENT
  Age: 40 Year
  Sex: Female

DRUGS (8)
  1. FLUOXETINE HYDROCHLORIDE [Suspect]
     Indication: MAJOR DEPRESSION
     Dosage: 40 MG, DAILY (1/D)
  2. AMITRIPTYLINE HCL [Interacting]
     Dosage: 100 MG, DAILY (1/D)
  3. RANITIDINE [Concomitant]
     Dosage: 300 MG, DAILY (1/D)
  4. KETOPROFEN [Concomitant]
     Dosage: 100 MG, DAILY (1/D)
  5. CISAPRIDE [Concomitant]
     Dosage: 40 MG, DAILY (1/D)
  6. LORTAB [Concomitant]
  7. MIDRIN [Concomitant]
  8. ALCOHOL [Concomitant]

REACTIONS (7)
  - DRUG INTERACTION [None]
  - DRUG TOXICITY [None]
  - DYSPNOEA [None]
  - ENZYME INHIBITION [None]
  - OVERDOSE [None]
  - SOMNOLENCE [None]
  - SUPRAVENTRICULAR TACHYCARDIA [None]
